FAERS Safety Report 20805580 (Version 2)
Quarter: 2022Q2

REPORT INFORMATION
  Report Type: Spontaneous
  Country: PL (occurrence: PL)
  Receive Date: 20220510
  Receipt Date: 20220630
  Transmission Date: 20220721
  Serious: Yes (Other)
  Sender: FDA-Public Use
  Company Number: PL-SUN PHARMACEUTICAL INDUSTRIES LTD-2022RR-336034

PATIENT
  Age: 59 Year
  Sex: Female

DRUGS (7)
  1. PREGABALIN [Suspect]
     Active Substance: PREGABALIN
     Indication: Mental disorder
     Dosage: 75 MILLIGRAM, BID
     Route: 065
     Dates: end: 202009
  2. PREGABALIN [Suspect]
     Active Substance: PREGABALIN
     Dosage: 150 MILLIGRAM, UNK
     Route: 065
  3. PREGABALIN [Suspect]
     Active Substance: PREGABALIN
     Dosage: 225 MILLIGRAM, UNK
     Route: 065
  4. PREGABALIN [Suspect]
     Active Substance: PREGABALIN
     Dosage: 75 MILLIGRAM, UNK
     Route: 065
  5. AGOMELATINE [Suspect]
     Active Substance: AGOMELATINE
     Indication: Mental disorder
     Dosage: 25 MILLIGRAM, DAILY
     Route: 065
  6. SULPIRIDE [Suspect]
     Active Substance: SULPIRIDE
     Indication: Mental disorder
     Dosage: 50 MILLIGRAM, UNK
     Route: 065
  7. HYDROXYZINE [Suspect]
     Active Substance: HYDROXYZINE HYDROCHLORIDE
     Indication: Mental disorder
     Dosage: 25 MILLIGRAM, UNK
     Route: 065

REACTIONS (4)
  - Drug ineffective [Unknown]
  - Hepatic enzyme increased [Unknown]
  - Enuresis [Unknown]
  - Sedation complication [Unknown]
